FAERS Safety Report 7211708-7 (Version None)
Quarter: 2011Q1

REPORT INFORMATION
  Report Type: 
  Country: None (occurrence: None)
  Receive Date: 20110105
  Receipt Date: 20101228
  Transmission Date: 20110831
  Serious: Yes (Hospitalization, Other)
  Sender: FDA-Public Use
  Company Number: US-PFIZER INC-2008067447

PATIENT
  Sex: Female

DRUGS (4)
  1. PANGLOBULIN [Suspect]
  2. NEURONTIN [Suspect]
  3. LYRICA [Suspect]
  4. POLYGAM [Suspect]

REACTIONS (3)
  - DELUSION [None]
  - CARDIOVASCULAR DISORDER [None]
  - OBSTRUCTIVE AIRWAYS DISORDER [None]
